FAERS Safety Report 20238154 (Version 1)
Quarter: 2021Q4

REPORT INFORMATION
  Report Type: Spontaneous
  Country: KR (occurrence: KR)
  Receive Date: 20211228
  Receipt Date: 20211228
  Transmission Date: 20220303
  Serious: Yes (Other)
  Sender: FDA-Public Use
  Company Number: KR-ELI_LILLY_AND_COMPANY-KR202112011875

PATIENT
  Age: 77 Year
  Sex: Female

DRUGS (2)
  1. HUMULIN R [Suspect]
     Active Substance: INSULIN HUMAN
     Indication: Rectal cancer
     Dosage: 10 INTERNATIONAL UNIT, UNKNOWN
     Route: 058
     Dates: start: 20170226, end: 20170226
  2. CALCIUM GLUCONATE [Suspect]
     Active Substance: CALCIUM GLUCONATE
     Indication: Rectal cancer
     Dosage: 40 ML, UNKNOWN
     Route: 042
     Dates: start: 20170226, end: 20170226

REACTIONS (5)
  - Hot flush [Recovered/Resolved]
  - Hypertension [Recovered/Resolved]
  - Dyspnoea [Recovered/Resolved]
  - Hyperhidrosis [Recovered/Resolved]
  - Off label use [Unknown]

NARRATIVE: CASE EVENT DATE: 20170226
